FAERS Safety Report 26175655 (Version 1)
Quarter: 2025Q4

REPORT INFORMATION
  Report Type: Spontaneous
  Country: GB (occurrence: GB)
  Receive Date: 20251218
  Receipt Date: 20251218
  Transmission Date: 20260118
  Serious: Yes (Other)
  Sender: ROCHE
  Company Number: None

PATIENT
  Age: 64 Year
  Sex: Female

DRUGS (8)
  1. TOCILIZUMAB [Suspect]
     Active Substance: TOCILIZUMAB
     Indication: Rheumatoid arthritis
     Route: 058
     Dates: start: 20250801, end: 20251127
  2. GENERICS UK DIHYDROCODEINE [Concomitant]
  3. ACETAMINOPHEN [Concomitant]
     Active Substance: ACETAMINOPHEN
  4. PYRIDOSTIGMINE [Concomitant]
     Active Substance: PYRIDOSTIGMINE
  5. CHLORHEXIDINE [Concomitant]
     Active Substance: CHLORHEXIDINE
  6. SUMATRIPTAN [Concomitant]
     Active Substance: SUMATRIPTAN
  7. CETIRIZINE [Concomitant]
     Active Substance: CETIRIZINE HYDROCHLORIDE
  8. LANSOPRAZOLE [Concomitant]
     Active Substance: LANSOPRAZOLE

REACTIONS (3)
  - Migraine [Unknown]
  - Aphthous ulcer [Unknown]
  - Epistaxis [Unknown]
